FAERS Safety Report 4427417-3 (Version None)
Quarter: 2004Q3

REPORT INFORMATION
  Report Type: 
  Country: None (occurrence: None)
  Receive Date: 20040812
  Receipt Date: 20040729
  Transmission Date: 20050211
  Serious: No
  Sender: FDA-Public Use
  Company Number: 04H-028-0268761-00

PATIENT
  Age: 67 Year
  Sex: Female

DRUGS (2)
  1. HEPARIN SODIUM [Suspect]
     Indication: ANTICOAGULANT THERAPY
     Dosage: SEE IMAGE
     Route: 042
  2. WARFARIN SODIUM [Suspect]
     Indication: ANTICOAGULANT THERAPY
     Dosage: SEE IMAGE

REACTIONS (8)
  - BREAST NECROSIS [None]
  - BREAST SWELLING [None]
  - DISEASE RECURRENCE [None]
  - DRUG INTERACTION [None]
  - HEPARIN-INDUCED THROMBOCYTOPENIA [None]
  - PULMONARY EMBOLISM [None]
  - SKIN DISCOLOURATION [None]
  - SKIN NECROSIS [None]
